FAERS Safety Report 6752306-9 (Version None)
Quarter: 2010Q2

REPORT INFORMATION
  Report Type: 
  Country: None (occurrence: None)
  Receive Date: 20100602
  Receipt Date: 20100527
  Transmission Date: 20101027
  Serious: No
  Sender: FDA-Public Use
  Company Number: US-JNJFOC-20100510871

PATIENT
  Sex: Female
  Weight: 117.94 kg

DRUGS (9)
  1. FENTANYL CITRATE [Suspect]
     Indication: PAIN
     Route: 062
     Dates: start: 20090901
  2. LASIX [Suspect]
     Indication: FLUID RETENTION
     Route: 048
     Dates: start: 20070101
  3. LISINOPRIL [Concomitant]
     Indication: HYPERTENSION
     Route: 048
  4. KLONOPIN [Concomitant]
     Indication: HYPERTENSION
     Route: 048
  5. CARDIZEM [Concomitant]
     Indication: HYPERTENSION
     Route: 048
  6. DARVOCET [Concomitant]
     Indication: PAIN
     Route: 048
  7. WELLBUTRIN [Concomitant]
     Indication: DEPRESSION
     Route: 048
  8. XANAX [Concomitant]
     Indication: ANXIETY
     Route: 048
  9. INHALER ALBUTEROL [Concomitant]
     Indication: ASTHMA
     Route: 055

REACTIONS (4)
  - DRUG DOSE OMISSION [None]
  - SOMNOLENCE [None]
  - VOMITING [None]
  - WITHDRAWAL SYNDROME [None]
